FAERS Safety Report 9121925 (Version 1)
Quarter: 2013Q1

REPORT INFORMATION
  Report Type: Spontaneous
  Country: MX (occurrence: MX)
  Receive Date: 20130227
  Receipt Date: 20130227
  Transmission Date: 20140127
  Serious: Yes (Other)
  Sender: FDA-Public Use
  Company Number: MX-PFIZER INC-2013069201

PATIENT
  Age: 78 Year
  Sex: Female

DRUGS (8)
  1. CORDARONE [Suspect]
     Indication: TACHYCARDIA
     Dosage: 1/2 TABLET EVERY 24 HOURS FROM MONDAY TO FRIDAY
     Route: 048
     Dates: start: 201001
  2. LIPITOR [Concomitant]
     Dosage: 1 DF, 1X/DAY
     Route: 048
  3. PHENOBARBITAL/PHENYTOIN [Concomitant]
     Indication: CONVULSION
     Dosage: 0.5 DF, 1X/DAY
  4. PHENOBARBITAL/PHENYTOIN [Concomitant]
     Dosage: 0.25 DF, 1X/DAY
  5. PLAVIX [Concomitant]
     Indication: PROPHYLAXIS
     Dosage: 1 DF, 1X/DAY
     Route: 048
     Dates: start: 2010
  6. APROVEL [Concomitant]
     Indication: HYPERTENSION
     Dosage: 1 DF, 1X/DAY
     Route: 048
     Dates: start: 201001
  7. APROVEL [Concomitant]
     Dosage: 1/2 TABLET EVERY 24 HOURS
     Route: 048
  8. SELOPRESIN [Concomitant]
     Indication: HYPERTENSION
     Dosage: 1 DF, 1X/DAY
     Route: 048
     Dates: start: 201001

REACTIONS (8)
  - Essential tremor [Recovered/Resolved]
  - Gait disturbance [Recovered/Resolved]
  - Speech disorder [Recovered/Resolved]
  - Motor dysfunction [Unknown]
  - Alopecia [Unknown]
  - Dizziness [Unknown]
  - Fatigue [Unknown]
  - Hypotension [Recovered/Resolved]
